FAERS Safety Report 14652919 (Version 1)
Quarter: 2018Q1

REPORT INFORMATION
  Report Type: Report from Study
  Country: DE (occurrence: DE)
  Receive Date: 20180319
  Receipt Date: 20180319
  Transmission Date: 20180509
  Serious: Yes (Other)
  Sender: FDA-Public Use
  Company Number: DE-ROCHE-2025031

PATIENT
  Age: 60 Year
  Sex: Female

DRUGS (2)
  1. BEVACIZUMAB. [Suspect]
     Active Substance: BEVACIZUMAB
     Indication: RENAL CANCER
     Route: 065
     Dates: start: 20121112, end: 20140220
  2. INTERFERON ALFA-2A [Suspect]
     Active Substance: INTERFERON ALFA-2A
     Indication: RENAL CELL CARCINOMA
     Route: 065
     Dates: start: 20121112, end: 20140303

REACTIONS (8)
  - Nausea [Unknown]
  - Influenza like illness [Unknown]
  - Headache [Unknown]
  - Vomiting [Unknown]
  - Fatigue [Unknown]
  - Leukopenia [Unknown]
  - Neutropenia [Unknown]
  - Nail dystrophy [Unknown]

NARRATIVE: CASE EVENT DATE: 20121126
